FAERS Safety Report 9774403 (Version 1)
Quarter: 2013Q4

REPORT INFORMATION
  Report Type: Report from Study
  Country: US (occurrence: US)
  Receive Date: 20131220
  Receipt Date: 20131220
  Transmission Date: 20140711
  Serious: Yes (Death)
  Sender: FDA-Public Use
  Company Number: US-ROCHE-1322584

PATIENT
  Age: 49 Year
  Sex: Male

DRUGS (4)
  1. AVASTIN [Suspect]
     Indication: BRAIN NEOPLASM MALIGNANT
     Route: 042
     Dates: start: 20111205
  2. AVASTIN [Suspect]
     Indication: BONE CANCER
     Route: 042
     Dates: start: 20120104
  3. AVASTIN [Suspect]
     Indication: GLIOBLASTOMA
     Route: 042
     Dates: start: 20111121
  4. AVASTIN [Suspect]
     Indication: BONE CANCER

REACTIONS (1)
  - Disease progression [Fatal]
